FAERS Safety Report 21208105 (Version 2)
Quarter: 2022Q3

REPORT INFORMATION
  Report Type: Spontaneous
  Country: None (occurrence: US)
  Receive Date: 20220812
  Receipt Date: 20220812
  Transmission Date: 20221027
  Serious: Yes (Other)
  Sender: FDA-Public Use
  Company Number: US-Edgewell Personal Care, LLC-2131824

PATIENT
  Age: 9 Month
  Sex: Female

DRUGS (1)
  1. BANANA BOAT (AVOBENZONE\HOMOSALATE\OCTOCRYLENE) [Suspect]
     Active Substance: AVOBENZONE\HOMOSALATE\OCTOCRYLENE
     Indication: Prophylaxis against solar radiation
     Route: 061
     Dates: start: 20220726

REACTIONS (9)
  - Dermatitis contact [Recovering/Resolving]
  - Urine output decreased [Unknown]
  - Pain [Recovering/Resolving]
  - Discomfort [Recovering/Resolving]
  - Rash [Recovering/Resolving]
  - Dermatitis acneiform [Recovering/Resolving]
  - Blister [Recovering/Resolving]
  - Pruritus [Recovering/Resolving]
  - Recalled product administered [Recovering/Resolving]

NARRATIVE: CASE EVENT DATE: 20220726
